FAERS Safety Report 8525216-4 (Version None)
Quarter: 2012Q3

REPORT INFORMATION
  Report Type: 
  Country: None (occurrence: None)
  Receive Date: 20120720
  Receipt Date: 20120716
  Transmission Date: 20120928
  Serious: Yes (Death)
  Sender: FDA-Public Use
  Company Number: PHHY2012CO061307

PATIENT
  Sex: Female

DRUGS (1)
  1. EXELON [Suspect]
     Indication: DEMENTIA ALZHEIMER'S TYPE
     Dosage: 4.6 MG, QD (9 MG / 5 CM /24 HOURS)
     Route: 062
     Dates: start: 20120411, end: 20120601

REACTIONS (1)
  - HEPATIC NEOPLASM [None]
